FAERS Safety Report 14712215 (Version 1)
Quarter: 2018Q2

REPORT INFORMATION
  Report Type: Report from Study
  Country: None (occurrence: US)
  Receive Date: 20180404
  Receipt Date: 20180404
  Transmission Date: 20180711
  Serious: Yes (Hospitalization)
  Sender: FDA-Public Use
  Company Number: US-ABBVIE-18K-163-2299915-00

PATIENT
  Age: 59 Year
  Sex: Male
  Weight: 105.33 kg

DRUGS (4)
  1. HUMIRA [Suspect]
     Active Substance: ADALIMUMAB
     Route: 058
     Dates: start: 20180330
  2. HUMIRA [Suspect]
     Active Substance: ADALIMUMAB
     Indication: PSORIATIC ARTHROPATHY
     Route: 058
     Dates: start: 201707, end: 20180302
  3. FAMOTIDINE. [Concomitant]
     Active Substance: FAMOTIDINE
     Indication: DYSPEPSIA
  4. LAMISIL [Concomitant]
     Active Substance: TERBINAFINE HYDROCHLORIDE
     Indication: ONYCHOMYCOSIS
     Dates: start: 20180401

REACTIONS (4)
  - Constipation [Recovering/Resolving]
  - Pancreatitis [Recovered/Resolved]
  - Spinal fracture [Unknown]
  - Onychomycosis [Recovering/Resolving]

NARRATIVE: CASE EVENT DATE: 201802
